FAERS Safety Report 25365432 (Version 2)
Quarter: 2025Q2

REPORT INFORMATION
  Report Type: Spontaneous
  Country: ES (occurrence: ES)
  Receive Date: 20250527
  Receipt Date: 20250606
  Transmission Date: 20250717
  Serious: Yes (Death, Hospitalization, Other)
  Sender: GILEAD
  Company Number: ES-GILEAD-2025-0714602

PATIENT
  Age: 55 Year
  Sex: Female

DRUGS (1)
  1. TRODELVY [Suspect]
     Active Substance: SACITUZUMAB GOVITECAN-HZIY
     Indication: Product used for unknown indication
     Route: 065

REACTIONS (3)
  - Sepsis [Fatal]
  - Neutropenia [Unknown]
  - Diarrhoea [Unknown]

NARRATIVE: CASE EVENT DATE: 20250422
